FAERS Safety Report 8317366-2 (Version None)
Quarter: 2012Q2

REPORT INFORMATION
  Report Type: 
  Country: None (occurrence: None)
  Receive Date: 20120427
  Receipt Date: 20120417
  Transmission Date: 20120825
  Serious: Yes (Hospitalization)
  Sender: FDA-Public Use
  Company Number: US-JNJFOC-20120405064

PATIENT
  Sex: Female
  Weight: 95.8 kg

DRUGS (9)
  1. REMICADE [Suspect]
     Indication: INFLAMMATORY BOWEL DISEASE
     Route: 042
     Dates: start: 20111002
  2. CALCIUM CARBONATE [Concomitant]
  3. FOLIC ACID [Concomitant]
  4. ANTIBIOTICS [Concomitant]
     Indication: INFLAMMATORY BOWEL DISEASE
  5. MULTIVITAMIN [Concomitant]
  6. METHOTREXATE [Concomitant]
  7. MELATONIN [Concomitant]
  8. TRAMADOL HCL [Concomitant]
  9. MESALAMINE [Concomitant]

REACTIONS (1)
  - DYSPEPSIA [None]
